FAERS Safety Report 9335439 (Version 2)
Quarter: 2013Q3

REPORT INFORMATION
  Report Type: Spontaneous
  Country: US (occurrence: US)
  Receive Date: 20130605
  Receipt Date: 20130710
  Transmission Date: 20140515
  Serious: Yes (Hospitalization, Disabling, Other)
  Sender: FDA-Public Use
  Company Number: US-009507513-1306USA001882

PATIENT
  Sex: Female
  Weight: 92.97 kg

DRUGS (1)
  1. NUVARING [Suspect]
     Indication: CONTRACEPTION
     Dosage: UNK
     Route: 067
     Dates: start: 20100519, end: 20110503

REACTIONS (8)
  - Cellulitis [Recovered/Resolved]
  - Deep vein thrombosis [Unknown]
  - Transfusion [Unknown]
  - Thrombolysis [Unknown]
  - Abortion spontaneous [Unknown]
  - Maternal exposure before pregnancy [Recovered/Resolved]
  - Rhinoplasty [Unknown]
  - Inguinal hernia [Unknown]
